FAERS Safety Report 7124559-9 (Version None)
Quarter: 2010Q4

REPORT INFORMATION
  Report Type: 
  Country: None (occurrence: None)
  Receive Date: 20101129
  Receipt Date: 20101026
  Transmission Date: 20110411
  Serious: Yes (Death)
  Sender: FDA-Public Use
  Company Number: GB-AMGEN-GBRCT2010002031

PATIENT

DRUGS (2)
  1. ETANERCEPT [Suspect]
     Indication: RHEUMATOID ARTHRITIS
     Dosage: 25 MG, 2 TIMES/WK
     Dates: start: 20031224
  2. METHOTREXATE [Concomitant]
     Dosage: UNKNOWN
     Dates: start: 20040615

REACTIONS (2)
  - GRAFT INFECTION [None]
  - LUNG CANCER METASTATIC [None]
